FAERS Safety Report 5151314-1 (Version None)
Quarter: 2006Q4

REPORT INFORMATION
  Report Type: 
  Country: None (occurrence: None)
  Receive Date: 20061115
  Receipt Date: 20061115
  Transmission Date: 20070319
  Serious: Yes (Hospitalization)
  Sender: FDA-Public Use
  Company Number: US-GLAXOSMITHKLINE-A0627526A

PATIENT
  Sex: Female

DRUGS (1)
  1. TAGAMET [Suspect]
     Route: 048
     Dates: start: 19860601

REACTIONS (1)
  - VISION BLURRED [None]
